FAERS Safety Report 6068625-8 (Version None)
Quarter: 2009Q1

REPORT INFORMATION
  Report Type: 
  Country: None (occurrence: None)
  Receive Date: 20090206
  Receipt Date: 20090205
  Transmission Date: 20090719
  Serious: Yes (Other)
  Sender: FDA-Public Use
  Company Number: A0766957A

PATIENT
  Sex: Female

DRUGS (1)
  1. NICODERM CQ [Suspect]
     Indication: SMOKING CESSATION THERAPY
     Dosage: 1PAT PER DAY
     Route: 062
     Dates: start: 20090106, end: 20090120

REACTIONS (5)
  - HYPERHIDROSIS [None]
  - PALLOR [None]
  - SYNCOPE [None]
  - TREMOR [None]
  - VOMITING [None]
